FAERS Safety Report 9410001 (Version 1)
Quarter: 2013Q3

REPORT INFORMATION
  Report Type: Report from Study
  Country: US (occurrence: US)
  Receive Date: 20130719
  Receipt Date: 20130719
  Transmission Date: 20140515
  Serious: Yes (Other)
  Sender: FDA-Public Use
  Company Number: US-ABBOTT-13P-163-1119012-00

PATIENT
  Sex: Female
  Weight: 89.89 kg

DRUGS (3)
  1. HUMIRA [Suspect]
     Indication: SERONEGATIVE ARTHRITIS
     Dates: start: 2009, end: 201304
  2. HUMIRA [Suspect]
     Dates: start: 201305
  3. METHOTREXATE [Concomitant]
     Indication: SERONEGATIVE ARTHRITIS

REACTIONS (6)
  - Chondropathy [Recovered/Resolved]
  - Cartilage hypertrophy [Recovered/Resolved]
  - Nasal septum deviation [Recovered/Resolved]
  - Sinusitis [Recovered/Resolved]
  - Ear infection [Unknown]
  - Sinusitis [Recovered/Resolved]
